FAERS Safety Report 19317514 (Version 1)
Quarter: 2021Q2

REPORT INFORMATION
  Report Type: Spontaneous
  Country: US (occurrence: US)
  Receive Date: 20210527
  Receipt Date: 20210527
  Transmission Date: 20210717
  Serious: No
  Sender: FDA-Public Use
  Company Number: US-PFIZER INC-2021268203

PATIENT
  Age: 54 Year
  Sex: Female

DRUGS (2)
  1. XELJANZ [Suspect]
     Active Substance: TOFACITINIB CITRATE
     Dosage: 5 MG
     Dates: start: 20210207
  2. XELJANZ [Suspect]
     Active Substance: TOFACITINIB CITRATE
     Dosage: 5 MG
     Dates: start: 20210201

REACTIONS (5)
  - Musculoskeletal stiffness [Unknown]
  - Asthenia [Unknown]
  - Joint stiffness [Unknown]
  - Tremor [Unknown]
  - Pain in extremity [Unknown]
